FAERS Safety Report 16312039 (Version 1)
Quarter: 2019Q2

REPORT INFORMATION
  Report Type: Spontaneous
  Country: US (occurrence: US)
  Receive Date: 20190515
  Receipt Date: 20190515
  Transmission Date: 20190711
  Serious: No
  Sender: FDA-Public Use
  Company Number: US-JUBILANT PHARMA LTD-2019US000453

PATIENT
  Age: 2 Year
  Weight: 12.8 kg

DRUGS (1)
  1. DRAXIMAGE MAA [Suspect]
     Active Substance: TECHNETIUM TC-99M ALBUMIN AGGREGATED
     Indication: PRODUCT USED FOR UNKNOWN INDICATION
     Dosage: 10 000 - 15 000 PARTICLES, SINGLE USE

REACTIONS (1)
  - Drug ineffective [Not Recovered/Not Resolved]
